FAERS Safety Report 12872094 (Version 1)
Quarter: 2016Q4

REPORT INFORMATION
  Report Type: Spontaneous
  Country: US (occurrence: US)
  Receive Date: 20161021
  Receipt Date: 20161021
  Transmission Date: 20170207
  Serious: Yes (Other)
  Sender: FDA-Public Use
  Company Number: US-NAPPMUNDI-USA-2016-0132807

PATIENT
  Sex: Female

DRUGS (2)
  1. NUCYNTA [Suspect]
     Active Substance: TAPENTADOL HYDROCHLORIDE
     Indication: PAIN
     Route: 048
  2. OXYCODONE HCL CR TABLETS (SIMILAR TO NDA 22-272) [Suspect]
     Active Substance: OXYCODONE HYDROCHLORIDE
     Indication: PAIN
     Dosage: 2 PILLS, Q3H
     Route: 048

REACTIONS (6)
  - Fear [Unknown]
  - Confusional state [Unknown]
  - Withdrawal syndrome [Unknown]
  - Dependence [Recovered/Resolved]
  - Depression [Unknown]
  - Arthralgia [Not Recovered/Not Resolved]
